FAERS Safety Report 6490112-3 (Version None)
Quarter: 2009Q4

REPORT INFORMATION
  Report Type: 
  Country: None (occurrence: None)
  Receive Date: 20091211
  Receipt Date: 20090413
  Transmission Date: 20100525
  Serious: No
  Sender: FDA-Public Use
  Company Number: A0778430A

PATIENT
  Age: 57 Year
  Sex: Female

DRUGS (7)
  1. FLONASE [Suspect]
     Dosage: 1SPR PER DAY
     Route: 045
     Dates: start: 20010101, end: 20010101
  2. FLONASE [Suspect]
     Route: 045
     Dates: start: 20080901
  3. AMLODIPINE [Concomitant]
  4. LEVOTHYROXINE SODIUM [Concomitant]
  5. CALCIUM [Concomitant]
  6. MULTI-VITAMIN [Concomitant]
  7. VITAMIN [Concomitant]

REACTIONS (1)
  - EPISTAXIS [None]
